FAERS Safety Report 4883699-5 (Version None)
Quarter: 2006Q1

REPORT INFORMATION
  Report Type: 
  Country: None (occurrence: None)
  Receive Date: 20060118
  Receipt Date: 20051021
  Transmission Date: 20060701
  Serious: Yes (Hospitalization)
  Sender: FDA-Public Use
  Company Number: AU-BRISTOL-MYERS SQUIBB COMPANY-13152368

PATIENT
  Age: 84 Year
  Sex: Male

DRUGS (4)
  1. IRBESARTAN AND HYDROCHLOROTHIAZIDE [Suspect]
     Route: 048
  2. INDAPAMIDE [Concomitant]
     Route: 048
  3. PARACETAMOL [Concomitant]
     Indication: PAIN
  4. PREDNISOLONE [Concomitant]
     Indication: POLYMYALGIA RHEUMATICA
     Dosage: DURATION OF THERAPY:  ^LESS THAN 5 YEARS^
     Route: 048

REACTIONS (2)
  - HYPOCHLORAEMIA [None]
  - HYPONATRAEMIA [None]
